FAERS Safety Report 9541586 (Version 1)
Quarter: 2013Q2

REPORT INFORMATION
  Report Type: Spontaneous
  Country: US (occurrence: None)
  Receive Date: 20130524
  Receipt Date: 20130524
  Transmission Date: 20140414
  Serious: Yes (Other)
  Sender: FDA-Public Use
  Company Number: PHEH2012US025761

PATIENT
  Age: 55 Year
  Sex: Male
  Weight: 83.9 kg

DRUGS (8)
  1. GILENYA [Suspect]
     Route: 048
  2. BACLOFEN (BACLOFEN) [Suspect]
     Route: 048
  3. MULTIVITAMINS (ASCORBIC ACID, ERGOCALCIFEROL, FOLIC ACID, NICOTINAMIDE, PANTHENOL, RETINOL, RIBOFLAVIN, THIAMINE HYDROCHLORIDE) [Concomitant]
  4. ZOLOFT (SERTRALINE HYDROCHLORIDE) [Concomitant]
  5. LOSARTAN (LOSARTAN) [Concomitant]
  6. COLECALCIFEROL (COLECALCIFEROL) [Concomitant]
  7. VITAMIN B12 (CYANOCOBALAMIN) [Concomitant]
  8. VITAMIN B COMPLEX (VITAMIN B COMPLEX) [Concomitant]

REACTIONS (2)
  - Gait disturbance [None]
  - Dizziness [None]
